FAERS Safety Report 8140262-0 (Version None)
Quarter: 2012Q1

REPORT INFORMATION
  Report Type: 
  Country: None (occurrence: None)
  Receive Date: 20120216
  Receipt Date: 20120208
  Transmission Date: 20120608
  Serious: Yes (Hospitalization, Other)
  Sender: FDA-Public Use
  Company Number: US-BIOGENIDEC-2012BI005422

PATIENT
  Age: 62 Year
  Sex: Male

DRUGS (3)
  1. AVONEX [Suspect]
     Indication: MULTIPLE SCLEROSIS
     Route: 030
     Dates: start: 19980601, end: 20030101
  2. AVONEX [Suspect]
     Route: 030
     Dates: start: 20100501
  3. AVONEX [Suspect]
     Route: 030
     Dates: start: 20030101, end: 20100201

REACTIONS (5)
  - UNDERDOSE [None]
  - HYPOTENSION [None]
  - MULTIPLE SCLEROSIS RELAPSE [None]
  - CONVULSION [None]
  - POLLAKIURIA [None]
